FAERS Safety Report 9371952 (Version 1)
Quarter: 2013Q2

REPORT INFORMATION
  Report Type: Report from Study
  Country: US (occurrence: US)
  Receive Date: 20130627
  Receipt Date: 20130627
  Transmission Date: 20140414
  Serious: Yes (Hospitalization, Other)
  Sender: FDA-Public Use
  Company Number: US-MYLANLABS-2012S1011124

PATIENT
  Age: 60 Year
  Sex: Female
  Weight: 97 kg

DRUGS (4)
  1. CLOZAPINE TABLETS [Suspect]
     Indication: SCHIZOAFFECTIVE DISORDER
     Route: 048
     Dates: start: 20111109, end: 20120529
  2. CLOZAPINE TABLETS [Suspect]
     Indication: TARDIVE DYSKINESIA
     Route: 048
     Dates: start: 20111109, end: 20120529
  3. ETOPOSIDE [Suspect]
     Indication: SMALL CELL LUNG CANCER
     Dates: start: 20120516, end: 20120518
  4. CARBOPLATIN [Suspect]
     Indication: SMALL CELL LUNG CANCER
     Dates: start: 20120517

REACTIONS (2)
  - Granulocytopenia [Recovered/Resolved]
  - Leukopenia [Recovered/Resolved]
